FAERS Safety Report 8110223-6 (Version None)
Quarter: 2012Q1

REPORT INFORMATION
  Report Type: 
  Country: None (occurrence: None)
  Receive Date: 20120202
  Receipt Date: 20120126
  Transmission Date: 20120608
  Serious: No
  Sender: FDA-Public Use
  Company Number: US-AMGEN-USASP2012005704

PATIENT
  Age: 60 Year
  Sex: Female

DRUGS (4)
  1. METHOTREXATE [Concomitant]
     Dosage: UNK
     Dates: start: 20110101
  2. ENBREL [Suspect]
     Indication: PRODUCT USED FOR UNKNOWN INDICATION
     Dosage: UNK
     Dates: start: 20110901
  3. HYDROXYCHLOROQUINE SULFATE [Concomitant]
  4. HYDROXYCHLOROQUINE SULFATE [Concomitant]
     Dosage: UNK
     Dates: start: 20110101

REACTIONS (1)
  - HEADACHE [None]
